FAERS Safety Report 4330368-6 (Version None)
Quarter: 2004Q1

REPORT INFORMATION
  Report Type: 
  Country: None (occurrence: None)
  Receive Date: 20040329
  Receipt Date: 20040316
  Transmission Date: 20041129
  Serious: Yes (Hospitalization)
  Sender: FDA-Public Use
  Company Number: A107389

PATIENT
  Age: 41 Year
  Sex: Female
  Weight: 56 kg

DRUGS (7)
  1. ZIPRASIDONE [Suspect]
     Indication: SCHIZOAFFECTIVE DISORDER
     Dosage: 120 MG (BID), ORAL
     Route: 048
     Dates: start: 20010320, end: 20010328
  2. LORAZEPAM [Concomitant]
  3. BENZTROPINE MESYLATE [Concomitant]
  4. MULTI-VITAMIN [Concomitant]
  5. QUETIAPINE FUMARATE [Concomitant]
  6. HALOPERIDOL [Concomitant]
  7. VALPROIC ACID [Concomitant]

REACTIONS (9)
  - AKATHISIA [None]
  - CONFUSIONAL STATE [None]
  - DELIRIUM [None]
  - DEPRESSED MOOD [None]
  - FALL [None]
  - INJURY [None]
  - SCHIZOAFFECTIVE DISORDER [None]
  - SKIN LACERATION [None]
  - TACHYCARDIA [None]
